FAERS Safety Report 9541456 (Version 3)
Quarter: 2014Q1

REPORT INFORMATION
  Report Type: Spontaneous
  Country: US (occurrence: US)
  Receive Date: 20130923
  Receipt Date: 20140117
  Transmission Date: 20141002
  Serious: Yes (Life-Threatening, Hospitalization, Other)
  Sender: FDA-Public Use
  Company Number: US-BRISTOL-MYERS SQUIBB COMPANY-19068998

PATIENT
  Age: 44 Year
  Sex: Female

DRUGS (5)
  1. YERVOY [Suspect]
     Indication: METASTATIC MALIGNANT MELANOMA
     Dosage: 1-OCT-12,23-OCT12,12-NOV-12,03-DEC12?18-APR12
     Route: 042
     Dates: start: 20130618, end: 20130618
  2. FERROUS SULFATE [Concomitant]
  3. PEPCID AC [Concomitant]
     Dosage: AT NT
  4. LEVOTHROID [Concomitant]
  5. LEVETIRACETAM [Concomitant]

REACTIONS (3)
  - Intestinal perforation [Unknown]
  - Malignant neoplasm progression [Unknown]
  - Sepsis [Unknown]
